FAERS Safety Report 15800371 (Version 2)
Quarter: 2020Q3

REPORT INFORMATION
  Report Type: Report from Study
  Country: IN (occurrence: IN)
  Receive Date: 20190108
  Receipt Date: 20200820
  Transmission Date: 20201102
  Serious: Yes (Death, Hospitalization)
  Sender: FDA-Public Use
  Company Number: PHHY2018IN198132

PATIENT
  Age: 48 Year
  Sex: Male

DRUGS (1)
  1. GLIVEC [Suspect]
     Active Substance: IMATINIB MESYLATE
     Indication: CHRONIC MYELOID LEUKAEMIA
     Dosage: 8 DF
     Route: 065

REACTIONS (4)
  - Infection [Unknown]
  - Limb injury [Unknown]
  - Death [Fatal]
  - Haemorrhoids [Unknown]

NARRATIVE: CASE EVENT DATE: 20200805
